FAERS Safety Report 9929402 (Version 1)
Quarter: 2014Q1

REPORT INFORMATION
  Report Type: Other
  Country: US (occurrence: US)
  Receive Date: 20140227
  Receipt Date: 20140227
  Transmission Date: 20141002
  Serious: Yes (Other)
  Sender: FDA-Public Use
  Company Number: US-BRISTOL-MYERS SQUIBB COMPANY-20327995

PATIENT
  Age: 47 Year
  Sex: Male

DRUGS (6)
  1. METFORMIN HCL [Suspect]
     Indication: DIABETES MELLITUS
  2. VITAMIN E [Suspect]
  3. INSULIN GLARGINE [Concomitant]
  4. OLMESARTAN MEDOXOMIL + HCTZ [Concomitant]
     Indication: HYPERTENSION
     Dosage: 1 DF: 40/25MG.
  5. ASPIRIN [Concomitant]
  6. FISH OIL [Concomitant]

REACTIONS (5)
  - Non-alcoholic steatohepatitis [Recovering/Resolving]
  - Weight increased [Unknown]
  - Low density lipoprotein increased [Recovered/Resolved]
  - Alanine aminotransferase increased [Recovered/Resolved]
  - Aspartate aminotransferase increased [Recovered/Resolved]
